FAERS Safety Report 8334419-3 (Version None)
Quarter: 2012Q2

REPORT INFORMATION
  Report Type: 
  Country: None (occurrence: None)
  Receive Date: 20120503
  Receipt Date: 20110525
  Transmission Date: 20120825
  Serious: No
  Sender: FDA-Public Use
  Company Number: US-BAUSCH-2011BL003534

PATIENT
  Age: 75 Year
  Sex: Female

DRUGS (3)
  1. VITAMIN C [Concomitant]
  2. LOTEMAX [Suspect]
     Indication: EPISCLERITIS
     Route: 047
     Dates: start: 20110511, end: 20110515
  3. MULTI-VITAMINS [Concomitant]

REACTIONS (3)
  - DRUG HYPERSENSITIVITY [None]
  - ERYTHEMA [None]
  - CHEMICAL INJURY [None]
